FAERS Safety Report 13980841 (Version 2)
Quarter: 2017Q3

REPORT INFORMATION
  Report Type: Spontaneous
  Country: US (occurrence: US)
  Receive Date: 20170918
  Receipt Date: 20170918
  Transmission Date: 20171128
  Serious: Yes (Hospitalization, Other)
  Sender: FDA-Public Use
  Company Number: US-BRISTOL-MYERS SQUIBB COMPANY-BMS-2017-081628

PATIENT
  Sex: Male

DRUGS (1)
  1. OPDIVO [Suspect]
     Active Substance: NIVOLUMAB
     Indication: RENAL CELL CARCINOMA
     Route: 065

REACTIONS (7)
  - Cancer in remission [Unknown]
  - Malignant neoplasm progression [Unknown]
  - Speech disorder [Unknown]
  - Incontinence [Unknown]
  - Blindness [Recovering/Resolving]
  - Hypoacusis [Unknown]
  - Cardiac arrest [Unknown]
